FAERS Safety Report 5453210-9 (Version None)
Quarter: 2007Q3

REPORT INFORMATION
  Report Type: 
  Country: None (occurrence: None)
  Receive Date: 20070914
  Receipt Date: 20070910
  Transmission Date: 20080115
  Serious: Yes (Hospitalization)
  Sender: FDA-Public Use
  Company Number: DK-ABBOTT-07P-044-0415685-01

PATIENT
  Sex: Female

DRUGS (1)
  1. HUMIRA [Suspect]
     Indication: ANKYLOSING SPONDYLITIS
     Route: 058
     Dates: start: 20061027

REACTIONS (4)
  - APPENDICITIS [None]
  - C-REACTIVE PROTEIN INCREASED [None]
  - ENDOMETRIOSIS [None]
  - SINUSITIS [None]
